FAERS Safety Report 25789867 (Version 1)
Quarter: 2025Q3

REPORT INFORMATION
  Report Type: Other
  Country: US (occurrence: US)
  Receive Date: 20250911
  Receipt Date: 20250911
  Transmission Date: 20251020
  Serious: No
  Sender: TIME CAPS
  Company Number: US-Time-Cap Labs, Inc.-2184270

PATIENT

DRUGS (1)
  1. BISACODYL [Suspect]
     Active Substance: BISACODYL
     Indication: Product used for unknown indication

REACTIONS (1)
  - Drug ineffective [Unknown]
